APPROVED DRUG PRODUCT: TORSEMIDE
Active Ingredient: TORSEMIDE
Strength: 5MG
Dosage Form/Route: TABLET;ORAL
Application: A076943 | Product #001
Applicant: HIKMA PHARMACEUTICALS USA INC
Approved: Mar 1, 2005 | RLD: No | RS: No | Type: DISCN